FAERS Safety Report 18114780 (Version 4)
Quarter: 2022Q2

REPORT INFORMATION
  Report Type: Spontaneous
  Country: US (occurrence: US)
  Receive Date: 20200805
  Receipt Date: 20220411
  Transmission Date: 20220721
  Serious: No
  Sender: FDA-Public Use
  Company Number: US-PFIZER INC-2020296161

PATIENT
  Age: 49 Year
  Sex: Female

DRUGS (5)
  1. MEKTOVI [Suspect]
     Active Substance: BINIMETINIB
     Indication: Anaplastic astrocytoma
     Dosage: 45 MG
  2. MEKTOVI [Suspect]
     Active Substance: BINIMETINIB
     Indication: Brain neoplasm
     Dosage: 1 MG
  3. MEKTOVI [Suspect]
     Active Substance: BINIMETINIB
     Dosage: UNK
  4. BRAFTOVI [Suspect]
     Active Substance: ENCORAFENIB
     Indication: Anaplastic astrocytoma
     Dosage: 450 MG
  5. BRAFTOVI [Suspect]
     Active Substance: ENCORAFENIB
     Indication: Brain neoplasm
     Dosage: 75 MG

REACTIONS (3)
  - Off label use [Unknown]
  - Product use in unapproved indication [Unknown]
  - Off label use [Unknown]
